FAERS Safety Report 9143892 (Version 13)
Quarter: 2013Q3

REPORT INFORMATION
  Report Type: Report from Study
  Country: CA (occurrence: CA)
  Receive Date: 20130306
  Receipt Date: 20130722
  Transmission Date: 20140515
  Serious: Yes (Death, Hospitalization, Other)
  Sender: FDA-Public Use
  Company Number: CA-ROCHE-1145994

PATIENT
  Age: 57 Year
  Sex: Female
  Weight: 63 kg

DRUGS (10)
  1. AVASTIN [Suspect]
     Indication: GLIOBLASTOMA
     Route: 042
     Dates: start: 20121011
  2. DECADRON [Suspect]
     Indication: PRODUCT USED FOR UNKNOWN INDICATION
     Route: 065
  3. DECAVITAMIN [Concomitant]
  4. LACOSAMIDE [Concomitant]
  5. KEPPRA [Concomitant]
  6. DILANTIN [Concomitant]
  7. RANITIDINE [Concomitant]
  8. TYLENOL [Concomitant]
  9. DILAUDID [Concomitant]
  10. METOCLOPRAMIDE [Concomitant]

REACTIONS (33)
  - Death [Fatal]
  - Brain oedema [Unknown]
  - Pharyngeal disorder [Unknown]
  - Disease progression [Not Recovered/Not Resolved]
  - Alanine aminotransferase increased [Unknown]
  - Blood creatinine decreased [Unknown]
  - Hemiplegia [Not Recovered/Not Resolved]
  - Platelet count decreased [Unknown]
  - Headache [Recovered/Resolved]
  - Erythema [Not Recovered/Not Resolved]
  - Oral mucosal erythema [Not Recovered/Not Resolved]
  - Dysphonia [Not Recovered/Not Resolved]
  - Asthenia [Recovering/Resolving]
  - Fatigue [Not Recovered/Not Resolved]
  - Gingival pain [Not Recovered/Not Resolved]
  - Sensitivity of teeth [Not Recovered/Not Resolved]
  - Nasopharyngitis [Recovered/Resolved]
  - Cough [Recovered/Resolved]
  - Eye infection [Recovering/Resolving]
  - Hepatic enzyme increased [Recovering/Resolving]
  - Dysphonia [Recovering/Resolving]
  - Pharyngeal erythema [Recovering/Resolving]
  - Oropharyngeal pain [Recovered/Resolved]
  - Abdominal pain [Recovered/Resolved]
  - Drug dose omission [Unknown]
  - Catheter site bruise [Not Recovered/Not Resolved]
  - Catheter site oedema [Recovering/Resolving]
  - Oral candidiasis [Not Recovered/Not Resolved]
  - Aphasia [Recovering/Resolving]
  - Memory impairment [Unknown]
  - Convulsion [Recovering/Resolving]
  - Neoplasm progression [Not Recovered/Not Resolved]
  - Blood potassium decreased [Unknown]
